FAERS Safety Report 9839868 (Version 1)
Quarter: 2014Q1

REPORT INFORMATION
  Report Type: Spontaneous
  Country: RU (occurrence: RU)
  Receive Date: 20140124
  Receipt Date: 20140124
  Transmission Date: 20141002
  Serious: Yes (Other)
  Sender: FDA-Public Use
  Company Number: PHHY2014RU005872

PATIENT
  Age: 26 Year
  Sex: Female

DRUGS (13)
  1. CICLOSPORIN [Suspect]
     Indication: APLASIA PURE RED CELL
     Dosage: 250 MG, PER DAY
  2. CICLOSPORIN [Suspect]
     Dosage: 125 MG, PER DAY
  3. VITAMIN B12 [Suspect]
     Indication: ANAEMIA
     Route: 048
  4. IRON [Suspect]
     Indication: ANAEMIA
  5. CELLCEPT [Concomitant]
     Indication: APLASIA PURE RED CELL
     Dosage: 40 MG/KG, PER DAY
  6. CELLCEPT [Concomitant]
     Dosage: 1500 MG/KG, PER ADY
  7. PREDNISONE [Concomitant]
     Route: 048
  8. PREDNISONE [Concomitant]
     Dosage: 5 MG, DAY
     Route: 048
  9. PREDNISONE [Concomitant]
     Dosage: 70 MG, UNK
  10. FLUDROCORTISONE [Concomitant]
     Dosage: 0.05 MG, PER DAY
     Route: 048
  11. CYCLOPHOSPHAMIDE [Concomitant]
     Dosage: 400MG/M2, PER 21 DAY
     Route: 042
  12. CREON [Concomitant]
     Dosage: 30000 U, PER DAY
     Route: 048
  13. ALFACALCIDOL [Concomitant]
     Dosage: 2.5 UG, PER DAY
     Route: 048

REACTIONS (5)
  - Nephropathy toxic [Recovered/Resolved]
  - Glomerular filtration rate decreased [Recovered/Resolved]
  - Blood urea increased [Recovered/Resolved]
  - Hypertension [Unknown]
  - Drug ineffective [Unknown]
